FAERS Safety Report 7048647-0 (Version None)
Quarter: 2010Q4

REPORT INFORMATION
  Report Type: 
  Country: None (occurrence: None)
  Receive Date: 20101018
  Receipt Date: 20101001
  Transmission Date: 20110411
  Serious: Yes (Hospitalization)
  Sender: FDA-Public Use
  Company Number: US-BAYER-201022769NA

PATIENT
  Age: 16 Year
  Sex: Female
  Weight: 67 kg

DRUGS (3)
  1. YAZ [Suspect]
     Indication: ACNE
     Dates: start: 20090401, end: 20091001
  2. NABUTEMONE [Concomitant]
     Indication: HEADACHE
     Dates: start: 20050101, end: 20091001
  3. IBUPROFEN [Concomitant]
     Indication: HEADACHE

REACTIONS (3)
  - BENIGN INTRACRANIAL HYPERTENSION [None]
  - INTRACRANIAL VENOUS SINUS THROMBOSIS [None]
  - MIGRAINE [None]
